FAERS Safety Report 5859207-9 (Version None)
Quarter: 2008Q3

REPORT INFORMATION
  Report Type: 
  Country: None (occurrence: None)
  Receive Date: 20080827
  Receipt Date: 20080818
  Transmission Date: 20090109
  Serious: Yes (Hospitalization, Other)
  Sender: FDA-Public Use
  Company Number: US-BAYER-200831133NA

PATIENT
  Age: 25 Year
  Sex: Female

DRUGS (1)
  1. MIRENA [Suspect]
     Indication: CONTRACEPTION
     Route: 015
     Dates: start: 20070827, end: 20080728

REACTIONS (3)
  - ABDOMINAL PAIN [None]
  - OVARIAN NEOPLASM [None]
  - POST PROCEDURAL HAEMATOMA [None]
